FAERS Safety Report 16210014 (Version 1)
Quarter: 2019Q2

REPORT INFORMATION
  Report Type: Spontaneous
  Country: US (occurrence: US)
  Receive Date: 20190417
  Receipt Date: 20190417
  Transmission Date: 20190711
  Serious: Yes (Other)
  Sender: FDA-Public Use
  Company Number: PHHY2019US086964

PATIENT
  Age: 8 Year
  Sex: Male

DRUGS (2)
  1. ABATACEPT [Suspect]
     Active Substance: ABATACEPT
     Indication: PROGRESSIVE FACIAL HEMIATROPHY
     Dosage: UNK
     Route: 065
  2. METHYLPREDNISOLONE. [Suspect]
     Active Substance: METHYLPREDNISOLONE
     Indication: PROGRESSIVE FACIAL HEMIATROPHY
     Dosage: UNK (HIGH-DOSE)
     Route: 042

REACTIONS (2)
  - Therapeutic response decreased [Unknown]
  - Mania [Unknown]
